FAERS Safety Report 13447226 (Version 1)
Quarter: 2017Q2

REPORT INFORMATION
  Report Type: Spontaneous
  Country: US (occurrence: US)
  Receive Date: 20170414
  Receipt Date: 20170414
  Transmission Date: 20170830
  Serious: No
  Sender: FDA-Public Use
  Company Number: None

PATIENT
  Age: 55 Year
  Sex: Female
  Weight: 58.5 kg

DRUGS (2)
  1. PREDNISOLONE. [Suspect]
     Active Substance: PREDNISOLONE
     Indication: CORNEAL TRANSPLANT
     Route: 047
     Dates: start: 20170307, end: 20170320
  2. WELLBUTRUIN [Concomitant]

REACTIONS (2)
  - Blood pressure increased [None]
  - Heart rate increased [None]

NARRATIVE: CASE EVENT DATE: 20170307
